FAERS Safety Report 20837958 (Version 1)
Quarter: 2022Q2

REPORT INFORMATION
  Report Type: Spontaneous
  Country: US (occurrence: US)
  Receive Date: 20220517
  Receipt Date: 20220517
  Transmission Date: 20220720
  Serious: No
  Sender: FDA-Public Use
  Company Number: US-Accord-237117

PATIENT
  Age: 50 Year
  Sex: Male

DRUGS (2)
  1. ATORVASTATIN [Interacting]
     Active Substance: ATORVASTATIN
     Indication: Product used for unknown indication
  2. MIFEPRISTONE [Interacting]
     Active Substance: MIFEPRISTONE
     Indication: Product used for unknown indication

REACTIONS (10)
  - Pain [Unknown]
  - Fatigue [Unknown]
  - Dizziness [Unknown]
  - Vomiting [Unknown]
  - Decreased appetite [Unknown]
  - Nausea [Unknown]
  - Somnolence [Unknown]
  - Asthenia [Unknown]
  - Product dose omission issue [Unknown]
  - Drug interaction [Unknown]
